FAERS Safety Report 23406591 (Version 1)
Quarter: 2024Q1

REPORT INFORMATION
  Report Type: Spontaneous
  Country: FR (occurrence: FR)
  Receive Date: 20240116
  Receipt Date: 20240116
  Transmission Date: 20240410
  Serious: Yes (Other)
  Sender: FDA-Public Use
  Company Number: None

PATIENT
  Age: 35 Year
  Sex: Female

DRUGS (1)
  1. LYRICA [Suspect]
     Active Substance: PREGABALIN
     Indication: Product used for unknown indication
     Dosage: 350 MILLIGRAM (1 TABLET(150MG), 1 TABLET(200MG) IN THE EVENING)
     Route: 048
     Dates: start: 20231122, end: 20231122

REACTIONS (5)
  - Bradycardia [Recovered/Resolved]
  - Nightmare [Recovered/Resolved]
  - Poor quality sleep [Recovered/Resolved]
  - Somnolence [Recovered/Resolved]
  - Incorrect dose administered [Recovered/Resolved]

NARRATIVE: CASE EVENT DATE: 20231122
